FAERS Safety Report 12864375 (Version 1)
Quarter: 2016Q4

REPORT INFORMATION
  Report Type: Spontaneous
  Country: US (occurrence: US)
  Receive Date: 20161020
  Receipt Date: 20161020
  Transmission Date: 20170207
  Serious: No
  Sender: FDA-Public Use
  Company Number: US-TEVA-675111USA

PATIENT
  Age: 62 Year
  Sex: Male
  Weight: 127.12 kg

DRUGS (10)
  1. LAMICTAL [Concomitant]
     Active Substance: LAMOTRIGINE
     Indication: BIPOLAR DISORDER
  2. COREG [Concomitant]
     Active Substance: CARVEDILOL
     Indication: HYPERTENSION
  3. VALIUM [Concomitant]
     Active Substance: DIAZEPAM
     Indication: ANXIETY DISORDER
     Dates: start: 1995
  4. VYVANSE [Concomitant]
     Active Substance: LISDEXAMFETAMINE DIMESYLATE
     Indication: ATTENTION DEFICIT/HYPERACTIVITY DISORDER
  5. LISINOPRIL. [Concomitant]
     Active Substance: LISINOPRIL
     Indication: HYPERTENSION
  6. ADDERALL [Concomitant]
     Active Substance: AMPHETAMINE ASPARTATE\AMPHETAMINE SULFATE\DEXTROAMPHETAMINE SACCHARATE\DEXTROAMPHETAMINE SULFATE
     Indication: ATTENTION DEFICIT/HYPERACTIVITY DISORDER
  7. PHENTERMINE. [Suspect]
     Active Substance: PHENTERMINE
     Indication: ATTENTION DEFICIT/HYPERACTIVITY DISORDER
     Dosage: 37.5 MILLIGRAM DAILY; TWO CAPSULES
     Dates: start: 2000
  8. VALIUM [Concomitant]
     Active Substance: DIAZEPAM
     Indication: PROVISIONAL TIC DISORDER
  9. ESCITALOPRAM [Concomitant]
     Active Substance: ESCITALOPRAM OXALATE
     Indication: DEPRESSION
  10. PHENTERMINE. [Suspect]
     Active Substance: PHENTERMINE
     Indication: DEPRESSION

REACTIONS (8)
  - Hypertension [Not Recovered/Not Resolved]
  - Increased appetite [Recovered/Resolved]
  - Ejection fraction abnormal [Unknown]
  - Insomnia [Recovered/Resolved]
  - Upper limb fracture [Recovered/Resolved]
  - Weight fluctuation [Not Recovered/Not Resolved]
  - Somnolence [Recovered/Resolved]
  - Mania [Recovered/Resolved]

NARRATIVE: CASE EVENT DATE: 2013
